FAERS Safety Report 6841689-7 (Version None)
Quarter: 2010Q3

REPORT INFORMATION
  Report Type: 
  Country: None (occurrence: None)
  Receive Date: 20100714
  Receipt Date: 20070710
  Transmission Date: 20110219
  Serious: No
  Sender: FDA-Public Use
  Company Number: US-PFIZER INC-2007058875

PATIENT
  Sex: Female
  Weight: 73.9 kg

DRUGS (2)
  1. CHANTIX [Suspect]
     Indication: SMOKING CESSATION THERAPY
     Route: 048
     Dates: start: 20070706, end: 20070706
  2. NEXIUM [Concomitant]
     Indication: REFLUX OESOPHAGITIS

REACTIONS (2)
  - DYSPNOEA [None]
  - FEELING ABNORMAL [None]
